FAERS Safety Report 8653315 (Version 3)
Quarter: 2012Q4

REPORT INFORMATION
  Report Type: 
  Country: CA (occurrence: CA)
  Receive Date: 20120706
  Receipt Date: 20120926
  Transmission Date: 20130627
  Serious: Yes (Death)
  Sender: FDA-Public Use
  Company Number: PHHY2012CA050906

PATIENT
  Sex: Male

DRUGS (2)
  1. SANDOSTATIN LAR [Suspect]
     Indication: SMALL INTESTINAL OBSTRUCTION
     Dosage: 20 mg, every 4 weeks
     Route: 030
     Dates: start: 20120215
  2. ZYTIGA [Concomitant]

REACTIONS (5)
  - Death [Fatal]
  - Liver function test abnormal [Unknown]
  - Fatigue [Unknown]
  - Dyspnoea [Unknown]
  - Feeling hot [Unknown]
